FAERS Safety Report 14828095 (Version 1)
Quarter: 2018Q2

REPORT INFORMATION
  Report Type: Spontaneous
  Country: US (occurrence: US)
  Receive Date: 20180430
  Receipt Date: 20180430
  Transmission Date: 20180711
  Serious: Yes (Other)
  Sender: FDA-Public Use
  Company Number: US-BIOGEN-2018BI00565042

PATIENT
  Age: 32 Year
  Sex: Male

DRUGS (1)
  1. AVONEX [Suspect]
     Active Substance: INTERFERON BETA-1A
     Indication: MULTIPLE SCLEROSIS
     Route: 065
     Dates: start: 20030801, end: 2007

REACTIONS (5)
  - Paralysis [Unknown]
  - Memory impairment [Not Recovered/Not Resolved]
  - Migraine [Not Recovered/Not Resolved]
  - Influenza like illness [Recovered/Resolved]
  - General physical health deterioration [Not Recovered/Not Resolved]

NARRATIVE: CASE EVENT DATE: 20030801
